FAERS Safety Report 5283120-1 (Version None)
Quarter: 2007Q2

REPORT INFORMATION
  Report Type: 
  Country: None (occurrence: None)
  Receive Date: 20070402
  Receipt Date: 20070321
  Transmission Date: 20071010
  Serious: Yes (Death, Hospitalization)
  Sender: FDA-Public Use
  Company Number: GB-ELI_LILLY_AND_COMPANY-GB200609007358

PATIENT
  Age: 82 Year
  Sex: Male

DRUGS (5)
  1. FLUOXETINE [Suspect]
     Dosage: 20 MG, DAILY (1/D)
     Route: 048
  2. ASPIRIN [Concomitant]
     Dosage: 75 MG, DAILY (1/D)
     Route: 048
  3. ENALAPRIL MALEATE [Concomitant]
     Dosage: 2.5 MG, DAILY (1/D)
     Route: 048
  4. LANSOPRAZOLE [Concomitant]
     Dosage: 15 MG, DAILY (1/D)
     Route: 048
  5. TIOTROPIUM BROMIDE [Concomitant]
     Dosage: 18 UG, UNK
     Route: 055

REACTIONS (1)
  - HYPONATRAEMIA [None]
